FAERS Safety Report 13528327 (Version 2)
Quarter: 2017Q2

REPORT INFORMATION
  Report Type: Spontaneous
  Country: AU (occurrence: AU)
  Receive Date: 20170509
  Receipt Date: 20170516
  Transmission Date: 20170830
  Serious: Yes (Other)
  Sender: FDA-Public Use
  Company Number: AU-SYNTHON BV-NL01PV17_43662

PATIENT
  Age: 81 Year
  Sex: Male

DRUGS (1)
  1. TAMSULOSIN [Suspect]
     Active Substance: TAMSULOSIN
     Dosage: UNK
     Route: 048

REACTIONS (2)
  - Floppy iris syndrome [Unknown]
  - Angle closure glaucoma [Unknown]
